FAERS Safety Report 8267804-9 (Version None)
Quarter: 2012Q2

REPORT INFORMATION
  Report Type: 
  Country: None (occurrence: None)
  Receive Date: 20120404
  Receipt Date: 20120327
  Transmission Date: 20120825
  Serious: Yes (Other)
  Sender: FDA-Public Use
  Company Number: 216637

PATIENT
  Age: 74 Year
  Sex: Female

DRUGS (15)
  1. STEOVIT (LEKOVIT CA) [Suspect]
     Indication: PRODUCT USED FOR UNKNOWN INDICATION
     Dosage: 1000/880 (1 IN 1 D)
  2. SPASMOMEN (OTILONIUM BROMIDE) [Concomitant]
  3. FEMARA [Concomitant]
  4. INNOHEP [Suspect]
     Indication: DEEP VEIN THROMBOSIS
     Dosage: 14000/0.7 ML, SUBCUTANEOUS
     Route: 058
     Dates: start: 20111006
  5. SOTALOL HCL [Concomitant]
  6. IBUPROFEN [Concomitant]
  7. ZOCOR [Concomitant]
  8. ALDACTONE [Concomitant]
  9. LORAZEPAM [Concomitant]
  10. ISOBETADINE (POVIDONE-IODINE) [Concomitant]
  11. PANTOMED (PANTOPRAZOLE) [Concomitant]
  12. NULYTELY [Concomitant]
  13. SIPRALEXA (ESCITALOPRAM) [Concomitant]
  14. DIOVAN [Concomitant]
  15. TRANSTEC (BUPRENORPHINE) [Concomitant]

REACTIONS (2)
  - MUSCLE HAEMORRHAGE [None]
  - RENAL FAILURE [None]
